FAERS Safety Report 17457127 (Version 2)
Quarter: 2020Q3

REPORT INFORMATION
  Report Type: Spontaneous
  Country: ES (occurrence: ES)
  Receive Date: 20200225
  Receipt Date: 20200707
  Transmission Date: 20201102
  Serious: Yes (Other)
  Sender: FDA-Public Use
  Company Number: ES-SA-2020SA046490

PATIENT

DRUGS (1)
  1. NO PRODUCT [Suspect]
     Active Substance: UNSPECIFIED INGREDIENT
     Dosage: 500 IU/KG, QW
     Dates: start: 201906

REACTIONS (4)
  - Subcutaneous haematoma [Recovered/Resolved]
  - Anti factor VIII antibody positive [Not Recovered/Not Resolved]
  - Mass [Unknown]
  - Vascular pseudoaneurysm thrombosis [Unknown]

NARRATIVE: CASE EVENT DATE: 2019
